FAERS Safety Report 13871660 (Version 1)
Quarter: 2017Q3

REPORT INFORMATION
  Report Type: Spontaneous
  Country: US (occurrence: US)
  Receive Date: 20170816
  Receipt Date: 20170816
  Transmission Date: 20171127
  Serious: No
  Sender: FDA-Public Use
  Company Number: US-BAYER-2017-155348

PATIENT
  Age: 50 Year
  Sex: Female

DRUGS (1)
  1. MIRENA [Suspect]
     Active Substance: LEVONORGESTREL
     Indication: CONTRACEPTION
     Dosage: 20 MCG/24HR, CONT
     Route: 015
     Dates: start: 20120716

REACTIONS (7)
  - Insomnia [None]
  - Stress [None]
  - Device use issue [None]
  - Nausea [None]
  - Constipation [None]
  - Abdominal pain lower [None]
  - Flatulence [None]

NARRATIVE: CASE EVENT DATE: 2017
